FAERS Safety Report 6030518-X (Version None)
Quarter: 2009Q1

REPORT INFORMATION
  Report Type: 
  Country: None (occurrence: None)
  Receive Date: 20090106
  Receipt Date: 20090106
  Transmission Date: 20090719
  Serious: Yes (Other)
  Sender: FDA-Public Use
  Company Number: None

PATIENT
  Age: 67 Year
  Sex: Male
  Weight: 79.3795 kg

DRUGS (1)
  1. TEMAZEPAM [Suspect]
     Indication: INSOMNIA
     Dosage: 1 PILL NIGHTLY PO
     Route: 048
     Dates: start: 20060910, end: 20081231

REACTIONS (3)
  - DRUG EFFECT DECREASED [None]
  - MIDDLE INSOMNIA [None]
  - WRONG TECHNIQUE IN DRUG USAGE PROCESS [None]
